FAERS Safety Report 24280701 (Version 13)
Quarter: 2025Q1

REPORT INFORMATION
  Report Type: Report from Study
  Country: MX (occurrence: MX)
  Receive Date: 20240904
  Receipt Date: 20250318
  Transmission Date: 20250408
  Serious: Yes (Other)
  Sender: NOVARTIS
  Company Number: MX-002147023-NVSC2024MX175678

PATIENT
  Age: 62 Year
  Sex: Female
  Weight: 80 kg

DRUGS (13)
  1. KISQALI [Suspect]
     Active Substance: RIBOCICLIB
     Indication: Breast cancer
     Dosage: 3 DOSAGE FORM, Q8H
     Route: 048
     Dates: start: 202301
  2. KISQALI [Suspect]
     Active Substance: RIBOCICLIB
     Indication: Metastases to lymph nodes
     Dosage: 1 DOSAGE FORM, TID (200 MG)
     Route: 048
     Dates: start: 20230201
  3. KISQALI [Suspect]
     Active Substance: RIBOCICLIB
     Dosage: 3 DOSAGE FORM (200 MG), QD
     Route: 048
     Dates: start: 20230212
  4. KISQALI [Suspect]
     Active Substance: RIBOCICLIB
     Dosage: 3 DOSAGE FORM (200 MG), QD
     Route: 048
  5. KISQALI [Suspect]
     Active Substance: RIBOCICLIB
     Dosage: 3 DOSAGE FORM, QD
     Route: 048
     Dates: start: 202302
  6. FULVESTRANT [Concomitant]
     Active Substance: FULVESTRANT
     Indication: Breast cancer
     Dosage: 2 DOSAGE FORM (250 MG), QMO
     Route: 065
     Dates: start: 202301
  7. FULVESTRANT [Concomitant]
     Active Substance: FULVESTRANT
     Dosage: 2 DOSAGE FORM, QMO
     Route: 030
     Dates: start: 20230212
  8. LOSARTAN [Concomitant]
     Active Substance: LOSARTAN
     Indication: Hypertension
     Dosage: 1 DOSAGE FORM, QD, 20 YEARS AGO (THE EXACT DATE IS UNKNOWN)
     Route: 048
  9. NIFEDIPINE [Concomitant]
     Active Substance: NIFEDIPINE
     Indication: Hypertension
     Dosage: 1 (30 MG), QD, 20 YEARS AGO (THE EXACT DATE IS UNKNOWN) (TABLET)
     Route: 048
     Dates: start: 2010
  10. METOPROLOL [Concomitant]
     Active Substance: METOPROLOL
     Indication: Hypertension
     Dosage: 50 MG, QD (1/2 OF 100 MG, QD, 20 YEARS AGO (THE EXACT DATE IS UNKNOWN)
     Route: 048
     Dates: start: 2010
  11. LEVOTHYROXINE [Concomitant]
     Active Substance: LEVOTHYROXINE
     Indication: Hypothyroidism
     Dosage: 1 DOSAGE FORM, QD, 1 (100 MG), QD, 20 YEARS AGO (THE EXACT DATE IS UNKNOWN)
     Route: 048
     Dates: start: 2010
  12. HYDROCHLOROTHIAZIDE [Concomitant]
     Active Substance: HYDROCHLOROTHIAZIDE
     Indication: Hypertension
     Dosage: 1 DOSAGE FORM, QD,1 (25 MG), QD
     Route: 048
     Dates: start: 2010
  13. NAPROXEN [Concomitant]
     Active Substance: NAPROXEN
     Indication: Myalgia
     Dosage: 250 MG, QD,1 (250 MG), QD
     Route: 048
     Dates: start: 20241216, end: 20241218

REACTIONS (29)
  - Lymphoma [Not Recovered/Not Resolved]
  - Metastasis [Unknown]
  - Pain in extremity [Recovering/Resolving]
  - Weight increased [Recovered/Resolved]
  - Anxiety [Recovered/Resolved]
  - Pruritus [Recovered/Resolved]
  - Hypersensitivity [Unknown]
  - Increased appetite [Unknown]
  - Burning sensation [Unknown]
  - Arthralgia [Recovered/Resolved]
  - Urticaria [Unknown]
  - Erythema [Recovering/Resolving]
  - Pruritus [Recovered/Resolved]
  - Helicobacter infection [Recovered/Resolved]
  - Depression [Recovered/Resolved]
  - Fatigue [Not Recovered/Not Resolved]
  - Mental fatigue [Unknown]
  - Fear [Unknown]
  - Abdominal discomfort [Unknown]
  - Illness [Unknown]
  - Influenza [Recovered/Resolved with Sequelae]
  - Catarrh [Unknown]
  - Nasal congestion [Unknown]
  - Dyspepsia [Recovered/Resolved]
  - Off label use [Unknown]
  - Influenza [Recovered/Resolved]
  - Cough [Recovered/Resolved]
  - Fall [Recovered/Resolved with Sequelae]
  - Limb injury [Recovered/Resolved]

NARRATIVE: CASE EVENT DATE: 20230201
